FAERS Safety Report 9018363 (Version 1)
Quarter: 2013Q1

REPORT INFORMATION
  Report Type: Spontaneous
  Country: US (occurrence: None)
  Receive Date: 20130111
  Receipt Date: 20130111
  Transmission Date: 20140127
  Serious: Yes (Hospitalization)
  Sender: FDA-Public Use
  Company Number: None

PATIENT
  Age: 69 Year
  Sex: Female
  Weight: 90.26 kg

DRUGS (1)
  1. FAMCICLOVIR [Suspect]
     Indication: HERPES ZOSTER
     Dosage: 500MG TID PO
     Route: 048
     Dates: start: 20120103, end: 20120103

REACTIONS (4)
  - Pallor [None]
  - Hyperhidrosis [None]
  - Lethargy [None]
  - Unresponsive to stimuli [None]
